FAERS Safety Report 19013392 (Version 1)
Quarter: 2021Q1

REPORT INFORMATION
  Report Type: Spontaneous
  Country: US (occurrence: US)
  Receive Date: 20210316
  Receipt Date: 20210316
  Transmission Date: 20210420
  Serious: Yes (Death)
  Sender: FDA-Public Use
  Company Number: None

PATIENT
  Sex: Male

DRUGS (20)
  1. CARDVEDILOL [Concomitant]
     Active Substance: CARVEDILOL
  2. DILANTIN [Concomitant]
     Active Substance: PHENYTOIN
  3. ASPIRIN. [Concomitant]
     Active Substance: ASPIRIN
  4. COZARR [Concomitant]
  5. TUMERIC [Concomitant]
     Active Substance: HERBALS\TURMERIC
  6. ANDRODERM [Concomitant]
     Active Substance: TESTOSTERONE
  7. VITAMIN B COMPLEX [Concomitant]
     Active Substance: CYANOCOBALAMIN\DEXPANTHENOL\NIACINAMIDE\PYRIDOXINE HYDROCHLORIDE\RIBOFLAVIN 5^-PHOSPHATE SODIUM\THIAMINE HYDROCHLORIDE\VITAMIN B COMPLEX
  8. FISH OIL [Concomitant]
     Active Substance: FISH OIL
  9. MILLPRED [Concomitant]
  10. OMEPREZOLE [Concomitant]
     Active Substance: OMEPRAZOLE
  11. PREDNISONE. [Concomitant]
     Active Substance: PREDNISONE
  12. PROTONIX [Concomitant]
     Active Substance: PANTOPRAZOLE SODIUM
  13. RAMPRIL [Concomitant]
     Active Substance: RAMIPRIL
  14. VIACTIV MULTI [Concomitant]
  15. CRESTOR [Concomitant]
     Active Substance: ROSUVASTATIN CALCIUM
  16. FLUDOCORT [Concomitant]
  17. VIT D [Concomitant]
     Active Substance: VITAMIN D NOS
  18. GENOTROPIN [Suspect]
     Active Substance: SOMATROPIN
     Indication: HYPOPITUITARISM
     Route: 058
     Dates: start: 20131230
  19. LEVOTHYROXINE. [Concomitant]
     Active Substance: LEVOTHYROXINE
  20. PREDNISOLONE. [Concomitant]
     Active Substance: PREDNISOLONE

REACTIONS (1)
  - Death [None]
